FAERS Safety Report 10079426 (Version 2)
Quarter: 2014Q2

REPORT INFORMATION
  Report Type: Spontaneous
  Country: IT (occurrence: IT)
  Receive Date: 20140415
  Receipt Date: 20140418
  Transmission Date: 20141212
  Serious: Yes (Other)
  Sender: FDA-Public Use
  Company Number: PHHY2014IT045616

PATIENT
  Age: 87 Year
  Sex: Female

DRUGS (4)
  1. ESIDREX [Suspect]
     Indication: HYPERTENSION
     Dosage: 25 MG, DAILY
     Route: 048
     Dates: start: 20140211, end: 20140214
  2. ESIDREX [Interacting]
     Dosage: UNK UKN, UNK
  3. CATAPRESS TTS [Interacting]
     Indication: HYPERTENSION
     Dosage: 1 DF, DAILY
     Route: 062
     Dates: start: 20130101, end: 20140214
  4. LOBIVON [Interacting]
     Indication: HYPERTENSION
     Dosage: 5 MG, DAILY
     Route: 048
     Dates: start: 20130101, end: 20140214

REACTIONS (2)
  - Bradycardia [Recovered/Resolved]
  - Presyncope [Recovered/Resolved]
